FAERS Safety Report 6058185-X (Version None)
Quarter: 2009Q1

REPORT INFORMATION
  Report Type: 
  Country: None (occurrence: None)
  Receive Date: 20090127
  Receipt Date: 20090127
  Transmission Date: 20090719
  Serious: Yes (Other)
  Sender: FDA-Public Use
  Company Number: None

PATIENT
  Sex: Female
  Weight: 95.4 kg

DRUGS (1)
  1. DAPTOMYCIN 500MG/10ML VIAL, CUBIST [Suspect]
     Indication: CELLULITIS
     Dosage: 385MG IV Q 24HOURS
     Route: 042
     Dates: start: 20090122, end: 20090123

REACTIONS (1)
  - RASH [None]
